FAERS Safety Report 4578514-3 (Version None)
Quarter: 2005Q1

REPORT INFORMATION
  Report Type: 
  Country: None (occurrence: None)
  Receive Date: 20050207
  Receipt Date: 20050207
  Transmission Date: 20050727
  Serious: Yes (Other)
  Sender: FDA-Public Use
  Company Number: None

PATIENT
  Sex: Female
  Weight: 108.8633 kg

DRUGS (2)
  1. PAXIL CR [Suspect]
     Indication: ANXIETY DISORDER
     Dosage: 1 PILL   DAILY   ORAL
     Route: 048
     Dates: start: 20031001, end: 20050201
  2. PAXIL CR [Suspect]
     Indication: PANIC DISORDER
     Dosage: 1 PILL   DAILY   ORAL
     Route: 048
     Dates: start: 20031001, end: 20050201

REACTIONS (13)
  - ABNORMAL DREAMS [None]
  - ANGER [None]
  - CRYING [None]
  - DRUG DEPENDENCE [None]
  - DRUG WITHDRAWAL SYNDROME [None]
  - FAMILY STRESS [None]
  - FEELING ABNORMAL [None]
  - GASTROINTESTINAL DISORDER [None]
  - HEART RATE INCREASED [None]
  - HYPERACUSIS [None]
  - IMPAIRED WORK ABILITY [None]
  - MOOD SWINGS [None]
  - SUICIDAL IDEATION [None]
